FAERS Safety Report 6900406-2 (Version None)
Quarter: 2010Q3

REPORT INFORMATION
  Report Type: 
  Country: None (occurrence: None)
  Receive Date: 20100803
  Receipt Date: 20100730
  Transmission Date: 20110219
  Serious: Yes (Death)
  Sender: FDA-Public Use
  Company Number: PHFR2010GB01220

PATIENT
  Sex: Male
  Weight: 93 kg

DRUGS (2)
  1. CLOZARIL [Suspect]
     Indication: SCHIZOPHRENIA
     Dosage: UNK
     Route: 048
     Dates: start: 19911028
  2. LANSOPRAZOLE [Concomitant]
     Dosage: UNK

REACTIONS (1)
  - DEATH [None]
